FAERS Safety Report 21520520 (Version 2)
Quarter: 2022Q4

REPORT INFORMATION
  Report Type: Spontaneous
  Country: US (occurrence: US)
  Receive Date: 20221028
  Receipt Date: 20221221
  Transmission Date: 20230113
  Serious: No
  Sender: FDA-Public Use
  Company Number: US-GSK-US2022150523

PATIENT
  Age: 59 Year
  Sex: Male

DRUGS (1)
  1. MEPOLIZUMAB [Suspect]
     Active Substance: MEPOLIZUMAB
     Indication: Nasal polyps
     Dosage: UNK
     Dates: start: 20221017, end: 20221017

REACTIONS (4)
  - Asthma [Recovered/Resolved]
  - Hypersensitivity [Unknown]
  - Paraesthesia [Unknown]
  - Throat irritation [Unknown]

NARRATIVE: CASE EVENT DATE: 20221017
